FAERS Safety Report 22525624 (Version 1)
Quarter: 2023Q2

REPORT INFORMATION
  Report Type: Report from Study
  Country: ZA (occurrence: None)
  Receive Date: 20230606
  Receipt Date: 20230606
  Transmission Date: 20230722
  Serious: Yes (Hospitalization)
  Sender: FDA-Public Use
  Company Number: 2023A124374

PATIENT
  Age: 69 Year
  Sex: Female

DRUGS (8)
  1. BUDESONIDE\FORMOTEROL FUMARATE DIHYDRATE [Suspect]
     Active Substance: BUDESONIDE\FORMOTEROL FUMARATE DIHYDRATE
     Indication: Asthma
     Dosage: 160 UG/INHAL TWO TIMES A DAY
     Route: 055
  2. DYNA SERTRALINE [Concomitant]
     Indication: Depression
     Route: 048
  3. LEVOTHYROXINE [Concomitant]
     Active Substance: LEVOTHYROXINE
     Indication: Hypothyroidism
     Route: 048
  4. HYDROCHLOROTHIAZIDE\LOSARTAN POTASSIUM [Concomitant]
     Active Substance: HYDROCHLOROTHIAZIDE\LOSARTAN POTASSIUM
     Indication: Hypertension
     Route: 048
  5. LIPOGEN [Concomitant]
     Indication: Blood cholesterol
     Route: 048
  6. METHOTREXATE SODIUM [Concomitant]
     Active Substance: METHOTREXATE SODIUM
     Indication: Rheumatoid arthritis
     Dosage: 2.5MG UNKNOWN
     Route: 048
  7. VERAPAMIL HYDROCHLORIDE [Concomitant]
     Active Substance: VERAPAMIL HYDROCHLORIDE
     Indication: Depression
     Route: 048
  8. ERGOCALCIFEROL [Concomitant]
     Active Substance: ERGOCALCIFEROL
     Indication: Vitamin D deficiency
     Route: 048

REACTIONS (10)
  - Pain [Unknown]
  - Palpitations [Unknown]
  - Dysphonia [Unknown]
  - Nausea [Unknown]
  - Tremor [Unknown]
  - Candida infection [Unknown]
  - Headache [Unknown]
  - Onychoclasis [Unknown]
  - Myalgia [Unknown]
  - Drug ineffective [Unknown]
